FAERS Safety Report 4925961-3 (Version None)
Quarter: 2006Q1

REPORT INFORMATION
  Report Type: 
  Country: None (occurrence: None)
  Receive Date: 20060224
  Receipt Date: 20060224
  Transmission Date: 20060701
  Serious: Yes (Other)
  Sender: FDA-Public Use
  Company Number: None

PATIENT
  Age: 52 Year
  Sex: Male
  Weight: 91.173 kg

DRUGS (1)
  1. OXYCODONE 40MG [Suspect]
     Indication: NEUROPATHY
     Dosage: 40MG ONE PO TID
     Route: 048

REACTIONS (2)
  - DIARRHOEA [None]
  - FEELING JITTERY [None]
